FAERS Safety Report 5202068-1 (Version None)
Quarter: 2007Q1

REPORT INFORMATION
  Report Type: 
  Country: None (occurrence: None)
  Receive Date: 20070109
  Receipt Date: 20070103
  Transmission Date: 20070707
  Serious: Yes (Hospitalization)
  Sender: FDA-Public Use
  Company Number: DE-BAYER-200710011BVD

PATIENT
  Sex: Male
  Weight: 100 kg

DRUGS (3)
  1. ASPIRIN COMPLEX [Suspect]
     Indication: CHILLS
     Route: 048
  2. UMCKALOABO [Concomitant]
     Indication: PHARYNGOLARYNGEAL PAIN
     Route: 048
  3. ACETAMINOPHEN [Concomitant]

REACTIONS (2)
  - ABDOMINAL PAIN [None]
  - DIARRHOEA [None]
